FAERS Safety Report 24910306 (Version 1)
Quarter: 2025Q1

REPORT INFORMATION
  Report Type: Spontaneous
  Country: CN (occurrence: CN)
  Receive Date: 20250131
  Receipt Date: 20250131
  Transmission Date: 20250409
  Serious: Yes (Other)
  Sender: NOVARTIS
  Company Number: CN-002147023-NVSC2025CN013897

PATIENT
  Age: 65 Year
  Sex: Male

DRUGS (2)
  1. VALSARTAN [Suspect]
     Active Substance: VALSARTAN
     Indication: Hypertension
     Dosage: 80.000 MG, QD
     Route: 048
     Dates: start: 20250116, end: 20250118
  2. NIMODIPINE [Concomitant]
     Active Substance: NIMODIPINE
     Indication: Hypertension
     Dosage: 10.000 MG, QD
     Route: 048
     Dates: start: 20250116, end: 20250124

REACTIONS (3)
  - Hypotension [Recovering/Resolving]
  - Restlessness [Unknown]
  - Speech disorder [Unknown]

NARRATIVE: CASE EVENT DATE: 20250118
